FAERS Safety Report 7111799-8 (Version None)
Quarter: 2010Q4

REPORT INFORMATION
  Report Type: 
  Country: None (occurrence: None)
  Receive Date: 20101119
  Receipt Date: 20101104
  Transmission Date: 20110411
  Serious: Yes (Hospitalization)
  Sender: FDA-Public Use
  Company Number: US-BIOGENIDEC-2010BI031051

PATIENT
  Age: 57 Year
  Sex: Male
  Weight: 170 kg

DRUGS (6)
  1. TYSABRI [Suspect]
     Indication: MULTIPLE SCLEROSIS
     Route: 042
     Dates: start: 20061205, end: 20090325
  2. TYSABRI [Suspect]
     Route: 042
     Dates: start: 20100809
  3. MORPHINE [Concomitant]
     Indication: RENAL PAIN
     Dates: start: 20100101
  4. MORPHINE [Concomitant]
     Indication: BACK PAIN
     Dates: start: 20100101
  5. MORPHINE [Concomitant]
     Indication: PAIN IN EXTREMITY
     Dates: start: 20100101
  6. PROZAC [Concomitant]

REACTIONS (5)
  - CYSTITIS [None]
  - GENERALISED OEDEMA [None]
  - MULTIPLE SCLEROSIS [None]
  - POOR VENOUS ACCESS [None]
  - WEIGHT DECREASED [None]
